FAERS Safety Report 9043663 (Version 1)
Quarter: 2013Q1

REPORT INFORMATION
  Report Type: Report from Study
  Country: US (occurrence: US)
  Receive Date: 20130129
  Receipt Date: 20130129
  Transmission Date: 20140127
  Serious: No
  Sender: FDA-Public Use
  Company Number: US-ABBOTT-12P-163-0914987-00

PATIENT
  Sex: Female

DRUGS (1)
  1. HUMIRA 40 MG/ 0.8 ML PRE-FILLED SYRINGE [Suspect]
     Indication: RHEUMATOID ARTHRITIS
     Route: 058

REACTIONS (7)
  - Blister [Unknown]
  - Secretion discharge [Unknown]
  - Pain [Unknown]
  - Staphylococcal infection [Recovered/Resolved]
  - Staphylococcal infection [Unknown]
  - Erythema [Unknown]
  - Pruritus [Unknown]
